FAERS Safety Report 10171228 (Version 1)
Quarter: 2014Q2

REPORT INFORMATION
  Report Type: Spontaneous
  Country: US (occurrence: None)
  Receive Date: 20140430
  Receipt Date: 20140430
  Transmission Date: 20141212
  Serious: Yes (Hospitalization, Other)
  Sender: FDA-Public Use
  Company Number: 2014US0104

PATIENT
  Sex: Female

DRUGS (1)
  1. ORFADIN(10 MILLIGRAM, CAPSULE)(NITISINONE) [Suspect]
     Dates: start: 20130612

REACTIONS (1)
  - Liver transplant [None]
